FAERS Safety Report 6430983-X (Version None)
Quarter: 2009Q4

REPORT INFORMATION
  Report Type: 
  Country: None (occurrence: None)
  Receive Date: 20091105
  Receipt Date: 20091105
  Transmission Date: 20100525
  Serious: No
  Sender: FDA-Public Use
  Company Number: None

PATIENT
  Age: 58 Year
  Sex: Female
  Weight: 59 kg

DRUGS (1)
  1. GLATIRAMER ACETATE [Suspect]
     Dates: start: 20070520, end: 20070520

REACTIONS (3)
  - PRURITUS [None]
  - RASH [None]
  - URTICARIA [None]
